FAERS Safety Report 21208348 (Version 2)
Quarter: 2022Q3

REPORT INFORMATION
  Report Type: Spontaneous
  Country: KR (occurrence: KR)
  Receive Date: 20220812
  Receipt Date: 20220909
  Transmission Date: 20221027
  Serious: Yes (Other)
  Sender: FDA-Public Use
  Company Number: KR-NOVARTISPH-NVSC2022KR128251

PATIENT
  Sex: Female

DRUGS (1)
  1. LUTATHERA [Suspect]
     Active Substance: LUTETIUM OXODOTREOTIDE LU-177
     Indication: Neuroendocrine carcinoma of the cervix
     Dosage: UNK (370 MBQ/ML) AT CALIBRATION TIME EXPIRATION: 72 HOURS
     Route: 065
     Dates: start: 20220623

REACTIONS (2)
  - Platelet count decreased [Not Recovered/Not Resolved]
  - Intentional product use issue [Unknown]
